FAERS Safety Report 18333183 (Version 1)
Quarter: 2020Q3

REPORT INFORMATION
  Report Type: Spontaneous
  Country: DE (occurrence: DE)
  Receive Date: 20200930
  Receipt Date: 20200930
  Transmission Date: 20201103
  Serious: Yes (Other)
  Sender: FDA-Public Use
  Company Number: DE-BAXTER-2020BAX019543

PATIENT
  Age: 14 Year
  Sex: Female

DRUGS (8)
  1. HOLOXAN [Suspect]
     Active Substance: IFOSFAMIDE
     Indication: OSTEOSARCOMA
     Dosage: PRIOR TO SURGERY
     Route: 065
  2. CISPLATIN. [Suspect]
     Active Substance: CISPLATIN
     Dosage: UP TO 14 WEEKS POST?SURGERY
     Route: 065
  3. ADRIAMYCIN [Suspect]
     Active Substance: DOXORUBICIN HYDROCHLORIDE
     Indication: OSTEOSARCOMA
     Dosage: PRIOR TO SURGERY
     Route: 065
  4. METHOTREXATE. [Suspect]
     Active Substance: METHOTREXATE
     Indication: OSTEOSARCOMA
     Dosage: PRIOR TO SURGERY
     Route: 065
  5. METHOTREXATE. [Suspect]
     Active Substance: METHOTREXATE
     Dosage: UP TO 14 WEEKS POST?SURGERY
     Route: 065
  6. CISPLATIN. [Suspect]
     Active Substance: CISPLATIN
     Indication: OSTEOSARCOMA
     Dosage: PRIOR TO SURGERY
     Route: 065
  7. HOLOXAN [Suspect]
     Active Substance: IFOSFAMIDE
     Dosage: UP TO 14 WEEKS POST?SURGERY
     Route: 065
  8. ADRIAMYCIN [Suspect]
     Active Substance: DOXORUBICIN HYDROCHLORIDE
     Dosage: UP TO 14 WEEKS POST?SURGERY
     Route: 065

REACTIONS (2)
  - Osteonecrosis [Recovered/Resolved]
  - Renal tubular injury [Unknown]
